FAERS Safety Report 8603328-4 (Version None)
Quarter: 2012Q3

REPORT INFORMATION
  Report Type: 
  Country: None (occurrence: None)
  Receive Date: 20120817
  Receipt Date: 20120808
  Transmission Date: 20120928
  Serious: Yes (Hospitalization)
  Sender: FDA-Public Use
  Company Number: JP-EISAI INC-E7389-02557-CLI-JP

PATIENT
  Age: 70 Year
  Sex: Female
  Weight: 48 kg

DRUGS (14)
  1. LECICARBON [Concomitant]
     Route: 048
  2. MAGMITT [Concomitant]
     Route: 048
  3. HALAVEN [Suspect]
     Indication: METASTASES TO LUNG
  4. PANTOSIN [Concomitant]
     Route: 048
  5. HALAVEN [Suspect]
  6. PREGABALIN [Concomitant]
     Route: 048
  7. MEDROXYPROGESTERONE ACETATE [Concomitant]
     Indication: BREAST CANCER RECURRENT
     Route: 048
     Dates: start: 20110712
  8. HALAVEN [Suspect]
     Indication: METASTASES TO LYMPH NODES
  9. AMLODIPINE [Concomitant]
     Route: 048
  10. CYMABLTA [Concomitant]
     Route: 048
  11. ETHYL ICOSAPENTATE [Concomitant]
     Indication: THROMBOSIS PROPHYLAXIS
     Route: 048
  12. HALAVEN [Suspect]
     Indication: BREAST CANCER RECURRENT
     Route: 041
     Dates: start: 20110808, end: 20110808
  13. LOXONIN [Concomitant]
     Route: 048
  14. PROTICASONE [Concomitant]
     Route: 048

REACTIONS (1)
  - INTERSTITIAL LUNG DISEASE [None]
